FAERS Safety Report 9636263 (Version 3)
Quarter: 2013Q4

REPORT INFORMATION
  Report Type: Report from Study
  Country: US (occurrence: US)
  Receive Date: 20131021
  Receipt Date: 20131104
  Transmission Date: 20140711
  Serious: Yes (Death, Hospitalization)
  Sender: FDA-Public Use
  Company Number: PHHO2010US03720

PATIENT
  Age: 70 Year
  Sex: Male

DRUGS (1)
  1. SOM230 [Suspect]
     Indication: POST PROCEDURAL FISTULA
     Dosage: 900 UG, BID
     Route: 058
     Dates: start: 20100219

REACTIONS (7)
  - Intra-abdominal haemorrhage [Fatal]
  - Abdominal pain [Recovered/Resolved]
  - Localised intraabdominal fluid collection [Recovered/Resolved]
  - Pneumonia [Unknown]
  - Atelectasis [Unknown]
  - Chills [Recovered/Resolved]
  - Pyrexia [Recovered/Resolved]
